FAERS Safety Report 5072782-X (Version None)
Quarter: 2006Q3

REPORT INFORMATION
  Report Type: 
  Country: None (occurrence: None)
  Receive Date: 20060801
  Receipt Date: 20060718
  Transmission Date: 20061208
  Serious: Yes (Hospitalization)
  Sender: FDA-Public Use
  Company Number: PL200607000078

PATIENT
  Age: 60 Year
  Sex: Female

DRUGS (1)
  1. LISPRO 25LIS75NP (LISPRO 25% LISPRO, 75% NPL) CARTRIDGE [Suspect]
     Indication: DIABETES MELLITUS NON-INSULIN-DEPENDENT
     Dosage: 2/D, SUBCUTANEOUS
     Route: 058

REACTIONS (3)
  - ANAEMIA [None]
  - ASTHENIA [None]
  - HYPOGLYCAEMIA [None]
